FAERS Safety Report 15006449 (Version 1)
Quarter: 2018Q2

REPORT INFORMATION
  Report Type: Report from Study
  Country: US (occurrence: US)
  Receive Date: 20180613
  Receipt Date: 20180613
  Transmission Date: 20180711
  Serious: Yes (Other)
  Sender: FDA-Public Use
  Company Number: US-JNJFOC-20180611750

PATIENT
  Age: 67 Year
  Sex: Male

DRUGS (20)
  1. KLOR-CON [Concomitant]
     Active Substance: POTASSIUM CHLORIDE
  2. PERCOCET                           /00446701/ [Concomitant]
     Active Substance: ACETAMINOPHEN\OXYCODONE HYDROCHLORIDE\OXYCODONE TEREPHTHALATE
  3. MULTAQ [Concomitant]
     Active Substance: DRONEDARONE
  4. CARVEDILOL. [Concomitant]
     Active Substance: CARVEDILOL
  5. LASIX [Concomitant]
     Active Substance: FUROSEMIDE
  6. DOCUSATE [Concomitant]
     Active Substance: DOCUSATE
  7. IMBRUVICA [Suspect]
     Active Substance: IBRUTINIB
     Indication: B-CELL LYMPHOMA
     Route: 048
     Dates: start: 20180515
  8. VITAMIN D [Concomitant]
     Active Substance: CHOLECALCIFEROL
  9. POLYETHYLENE [Concomitant]
     Active Substance: HIGH DENSITY POLYETHYLENE
  10. ROSUVASTATIN. [Concomitant]
     Active Substance: ROSUVASTATIN
  11. ELIQUIS [Concomitant]
     Active Substance: APIXABAN
  12. OMEPRAZOLE. [Concomitant]
     Active Substance: OMEPRAZOLE
  13. OXYCODONE [Concomitant]
     Active Substance: OXYCODONE
  14. CYANOCOBALAMIN. [Concomitant]
     Active Substance: CYANOCOBALAMIN
  15. FERROUS                            /00023501/ [Concomitant]
  16. ACETYLSALICYLIC ACID [Concomitant]
     Active Substance: ASPIRIN
  17. PREGABALIN. [Concomitant]
     Active Substance: PREGABALIN
  18. LORATADINE. [Concomitant]
     Active Substance: LORATADINE
  19. POTASSIUM [Concomitant]
     Active Substance: POTASSIUM
  20. CYCLOSPORINE. [Concomitant]
     Active Substance: CYCLOSPORINE

REACTIONS (6)
  - Off label use [Unknown]
  - Contusion [Unknown]
  - Post procedural haemorrhage [Unknown]
  - Skin cancer [Unknown]
  - Tooth extraction [Unknown]
  - Product use in unapproved indication [Unknown]

NARRATIVE: CASE EVENT DATE: 20180515
